FAERS Safety Report 9619497 (Version 2)
Quarter: 2013Q4

REPORT INFORMATION
  Report Type: Spontaneous
  Country: US (occurrence: DE)
  Receive Date: 20131014
  Receipt Date: 20131024
  Transmission Date: 20140711
  Serious: Yes (Other)
  Sender: FDA-Public Use
  Company Number: DE-PFIZER INC-2013292302

PATIENT
  Age: 44 Year
  Sex: Male

DRUGS (1)
  1. PHENYTOIN [Suspect]
     Indication: CONVULSION
     Dosage: 4X2 (WHICH IS ABOUT 0.6 G DH. DAILY)

REACTIONS (10)
  - Depressed level of consciousness [Recovered/Resolved]
  - Amaurosis [Recovered/Resolved]
  - Toxicity to various agents [Unknown]
  - Dyskinesia [Recovered/Resolved]
  - Coordination abnormal [Recovered/Resolved]
  - Hyperhidrosis [Recovered/Resolved]
  - Gingivitis [Recovered/Resolved]
  - Euphoric mood [Recovering/Resolving]
  - Dysphoria [Recovered/Resolved]
  - Feeling abnormal [Recovered/Resolved]
